FAERS Safety Report 5391746-X (Version None)
Quarter: 2007Q3

REPORT INFORMATION
  Report Type: 
  Country: None (occurrence: None)
  Receive Date: 20070717
  Receipt Date: 20070703
  Transmission Date: 20080115
  Serious: Yes (Life-Threatening)
  Sender: FDA-Public Use
  Company Number: 2007RR-08444

PATIENT
  Sex: Female

DRUGS (7)
  1. AMITRIPTYLINE HCL [Suspect]
  2. GABAPENTIN [Suspect]
  3. FUROSEMIDE [Concomitant]
  4. METFORMIN HYDROCHLORIDE [Concomitant]
  5. RAMIPRIL [Concomitant]
  6. SIMVASTATIN [Concomitant]
  7. SOTALOL HCL [Concomitant]

REACTIONS (1)
  - PANCYTOPENIA [None]
